FAERS Safety Report 16699751 (Version 2)
Quarter: 2019Q3

REPORT INFORMATION
  Report Type: Spontaneous
  Country: US (occurrence: US)
  Receive Date: 20190813
  Receipt Date: 20190829
  Transmission Date: 20191004
  Serious: Yes (Other)
  Sender: FDA-Public Use
  Company Number: US-009507513-1908USA004909

PATIENT
  Age: 17 Year
  Sex: Female
  Weight: 78.46 kg

DRUGS (1)
  1. NEXPLANON [Suspect]
     Active Substance: ETONOGESTREL
     Dosage: 1 IMPLANT (68 MG), EVERY 3 YEARS
     Route: 059
     Dates: start: 20190726, end: 20190807

REACTIONS (3)
  - Surgery [Unknown]
  - Device expulsion [Recovered/Resolved]
  - No adverse event [Unknown]

NARRATIVE: CASE EVENT DATE: 20190807
